FAERS Safety Report 7104724-7 (Version None)
Quarter: 2010Q4

REPORT INFORMATION
  Report Type: 
  Country: None (occurrence: None)
  Receive Date: 20101116
  Receipt Date: 20101109
  Transmission Date: 20110411
  Serious: Yes (Life-Threatening)
  Sender: FDA-Public Use
  Company Number: BR-SHIRE-SPV1-2010-01967

PATIENT
  Age: 11 Year
  Sex: Male

DRUGS (1)
  1. ELAPRASE [Suspect]
     Indication: MUCOPOLYSACCHARIDOSIS II
     Dosage: 2 UNK, 1X/WEEK
     Route: 041
     Dates: start: 20080101

REACTIONS (4)
  - INFUSION RELATED REACTION [None]
  - LARYNGEAL OEDEMA [None]
  - RENAL IMPAIRMENT [None]
  - URTICARIA [None]
